FAERS Safety Report 25154857 (Version 2)
Quarter: 2025Q2

REPORT INFORMATION
  Report Type: Other
  Country: FR (occurrence: FR)
  Receive Date: 20250403
  Receipt Date: 20250421
  Transmission Date: 20250716
  Serious: Yes (Hospitalization, Disabling, Other)
  Sender: STRIDES
  Company Number: None

PATIENT
  Age: 60 Year
  Sex: Female

DRUGS (144)
  1. PREGABALIN [Suspect]
     Active Substance: PREGABALIN
     Indication: Product used for unknown indication
     Route: 065
  2. PREGABALIN [Suspect]
     Active Substance: PREGABALIN
     Route: 048
  3. CETIRIZINE [Suspect]
     Active Substance: CETIRIZINE HYDROCHLORIDE
     Indication: Product used for unknown indication
     Route: 065
  4. SMECTA [Suspect]
     Active Substance: MONTMORILLONITE
     Indication: Product used for unknown indication
     Route: 065
  5. SMECTA [Suspect]
     Active Substance: MONTMORILLONITE
     Route: 065
  6. PROGESTERONE [Suspect]
     Active Substance: PROGESTERONE
     Indication: Product used for unknown indication
     Route: 065
  7. ACETAMINOPHEN [Suspect]
     Active Substance: ACETAMINOPHEN
     Indication: Product used for unknown indication
     Route: 065
  8. ACETAMINOPHEN [Suspect]
     Active Substance: ACETAMINOPHEN
     Route: 048
  9. PREGABALIN [Suspect]
     Active Substance: PREGABALIN
     Indication: Product used for unknown indication
     Route: 048
  10. PREGABALIN [Suspect]
     Active Substance: PREGABALIN
     Route: 048
  11. MIRTAZAPINE [Suspect]
     Active Substance: MIRTAZAPINE
     Indication: Product used for unknown indication
     Route: 048
  12. MIRTAZAPINE [Suspect]
     Active Substance: MIRTAZAPINE
     Route: 048
  13. METEOSPASMYL (ALVERINE CITRATE\DIMETHICONE) [Suspect]
     Active Substance: ALVERINE CITRATE\DIMETHICONE
     Indication: Product used for unknown indication
     Route: 065
  14. METEOSPASMYL (ALVERINE CITRATE\DIMETHICONE) [Suspect]
     Active Substance: ALVERINE CITRATE\DIMETHICONE
     Route: 065
  15. METEOSPASMYL (ALVERINE CITRATE\DIMETHICONE) [Suspect]
     Active Substance: ALVERINE CITRATE\DIMETHICONE
     Route: 065
  16. LOCOID [Suspect]
     Active Substance: HYDROCORTISONE BUTYRATE
     Indication: Product used for unknown indication
     Route: 065
  17. LOCOID [Suspect]
     Active Substance: HYDROCORTISONE BUTYRATE
     Route: 065
  18. CHLORMADINONE [Suspect]
     Active Substance: CHLORMADINONE
     Indication: Product used for unknown indication
     Route: 065
  19. BROMAZEPAM [Suspect]
     Active Substance: BROMAZEPAM
     Indication: Product used for unknown indication
     Route: 048
  20. BROMAZEPAM [Suspect]
     Active Substance: BROMAZEPAM
     Route: 065
  21. BROMAZEPAM [Suspect]
     Active Substance: BROMAZEPAM
     Route: 065
  22. BROMAZEPAM [Suspect]
     Active Substance: BROMAZEPAM
     Route: 048
  23. DAFALGAN [Suspect]
     Active Substance: ACETAMINOPHEN
     Indication: Product used for unknown indication
     Route: 048
  24. DAFALGAN [Suspect]
     Active Substance: ACETAMINOPHEN
     Route: 048
  25. GLYCERIN\MINERAL OIL\PETROLATUM [Suspect]
     Active Substance: GLYCERIN\MINERAL OIL\PETROLATUM
     Indication: Product used for unknown indication
     Route: 003
  26. IBUPROFEN [Suspect]
     Active Substance: IBUPROFEN
     Indication: Product used for unknown indication
     Route: 003
  27. NOMEGESTROL ACETATE [Suspect]
     Active Substance: NOMEGESTROL ACETATE
     Indication: Ovarian cyst
     Route: 065
     Dates: start: 20150403
  28. NOMEGESTROL ACETATE [Suspect]
     Active Substance: NOMEGESTROL ACETATE
     Indication: Menstruation irregular
     Route: 065
     Dates: start: 20100621
  29. NOMEGESTROL ACETATE [Suspect]
     Active Substance: NOMEGESTROL ACETATE
     Indication: Product used for unknown indication
     Route: 065
     Dates: start: 20170921
  30. NOMEGESTROL ACETATE [Suspect]
     Active Substance: NOMEGESTROL ACETATE
     Route: 065
     Dates: start: 20140505
  31. NOMEGESTROL ACETATE [Suspect]
     Active Substance: NOMEGESTROL ACETATE
     Route: 065
     Dates: start: 20181106, end: 20190117
  32. NOMEGESTROL ACETATE [Suspect]
     Active Substance: NOMEGESTROL ACETATE
     Route: 065
     Dates: start: 20170613
  33. NOMEGESTROL ACETATE [Suspect]
     Active Substance: NOMEGESTROL ACETATE
     Route: 065
     Dates: start: 20180329
  34. NOMEGESTROL ACETATE [Suspect]
     Active Substance: NOMEGESTROL ACETATE
     Route: 065
     Dates: start: 20130517
  35. NOMEGESTROL ACETATE [Suspect]
     Active Substance: NOMEGESTROL ACETATE
     Route: 065
     Dates: start: 20170307
  36. NOMEGESTROL ACETATE [Suspect]
     Active Substance: NOMEGESTROL ACETATE
     Route: 048
     Dates: start: 20171211
  37. NOMEGESTROL ACETATE [Suspect]
     Active Substance: NOMEGESTROL ACETATE
     Route: 065
     Dates: start: 20120514
  38. NOMEGESTROL ACETATE [Suspect]
     Active Substance: NOMEGESTROL ACETATE
     Route: 065
     Dates: start: 20170918
  39. NOMEGESTROL ACETATE [Suspect]
     Active Substance: NOMEGESTROL ACETATE
     Route: 065
  40. NOMEGESTROL ACETATE [Suspect]
     Active Substance: NOMEGESTROL ACETATE
     Route: 048
  41. NOMEGESTROL ACETATE [Suspect]
     Active Substance: NOMEGESTROL ACETATE
     Route: 065
  42. NOMEGESTROL ACETATE [Suspect]
     Active Substance: NOMEGESTROL ACETATE
  43. CHLORMADINONE ACETATE [Suspect]
     Active Substance: CHLORMADINONE ACETATE
     Indication: Menstruation irregular
     Route: 065
  44. CHLORMADINONE ACETATE [Suspect]
     Active Substance: CHLORMADINONE ACETATE
     Indication: Ovarian cyst
     Route: 065
     Dates: start: 20190806
  45. CHLORMADINONE ACETATE [Suspect]
     Active Substance: CHLORMADINONE ACETATE
     Indication: Product used for unknown indication
     Route: 065
     Dates: start: 20190715
  46. CHLORMADINONE ACETATE [Suspect]
     Active Substance: CHLORMADINONE ACETATE
     Indication: Menstruation irregular
     Route: 065
     Dates: start: 20190117
  47. CHLORMADINONE ACETATE [Suspect]
     Active Substance: CHLORMADINONE ACETATE
     Route: 065
     Dates: start: 20100317, end: 20100621
  48. CHLORMADINONE ACETATE [Suspect]
     Active Substance: CHLORMADINONE ACETATE
     Route: 065
     Dates: start: 20100317
  49. CHLORMADINONE ACETATE [Suspect]
     Active Substance: CHLORMADINONE ACETATE
     Route: 065
     Dates: start: 20190117
  50. CHLORMADINONE ACETATE [Suspect]
     Active Substance: CHLORMADINONE ACETATE
     Dates: start: 20190715
  51. CHLORMADINONE ACETATE [Suspect]
     Active Substance: CHLORMADINONE ACETATE
     Route: 065
     Dates: start: 20191028
  52. CHLORMADINONE ACETATE [Suspect]
     Active Substance: CHLORMADINONE ACETATE
  53. CHLORMADINONE ACETATE [Suspect]
     Active Substance: CHLORMADINONE ACETATE
     Route: 065
     Dates: start: 20170918
  54. LYRICA [Suspect]
     Active Substance: PREGABALIN
     Indication: Product used for unknown indication
     Route: 048
  55. MIRTAZAPINE [Suspect]
     Active Substance: MIRTAZAPINE
     Indication: Product used for unknown indication
     Route: 048
  56. TRAMADOL HYDROCHLORIDE [Suspect]
     Active Substance: TRAMADOL HYDROCHLORIDE
     Indication: Complex regional pain syndrome
     Route: 048
  57. TRAMADOL HYDROCHLORIDE [Suspect]
     Active Substance: TRAMADOL HYDROCHLORIDE
     Indication: Product used for unknown indication
  58. TIAPRIDE HYDROCHLORIDE [Suspect]
     Active Substance: TIAPRIDE HYDROCHLORIDE
     Indication: Product used for unknown indication
     Route: 048
  59. TIAPRIDE HYDROCHLORIDE [Suspect]
     Active Substance: TIAPRIDE HYDROCHLORIDE
     Route: 048
  60. NOMEGESTROL [Suspect]
     Active Substance: NOMEGESTROL
     Indication: Product used for unknown indication
     Route: 065
  61. NOMEGESTROL [Suspect]
     Active Substance: NOMEGESTROL
     Route: 065
  62. NOMEGESTROL [Suspect]
     Active Substance: NOMEGESTROL
     Route: 065
  63. NOMEGESTROL [Suspect]
     Active Substance: NOMEGESTROL
     Route: 065
  64. NOMEGESTROL [Suspect]
     Active Substance: NOMEGESTROL
     Route: 065
  65. NOMEGESTROL [Suspect]
     Active Substance: NOMEGESTROL
     Route: 065
  66. NOMEGESTROL [Suspect]
     Active Substance: NOMEGESTROL
     Route: 065
  67. NOMEGESTROL [Suspect]
     Active Substance: NOMEGESTROL
     Route: 065
  68. NOMEGESTROL [Suspect]
     Active Substance: NOMEGESTROL
     Route: 065
  69. NOMEGESTROL [Suspect]
     Active Substance: NOMEGESTROL
     Route: 065
  70. NOMEGESTROL [Suspect]
     Active Substance: NOMEGESTROL
     Route: 065
  71. NOMEGESTROL [Suspect]
     Active Substance: NOMEGESTROL
     Route: 065
  72. NOMEGESTROL [Suspect]
     Active Substance: NOMEGESTROL
     Route: 065
  73. NOMEGESTROL [Suspect]
     Active Substance: NOMEGESTROL
     Route: 065
  74. NOMEGESTROL [Suspect]
     Active Substance: NOMEGESTROL
     Route: 065
  75. NOMEGESTROL [Suspect]
     Active Substance: NOMEGESTROL
     Route: 065
  76. NOMEGESTROL [Suspect]
     Active Substance: NOMEGESTROL
     Route: 065
  77. NOMEGESTROL [Suspect]
     Active Substance: NOMEGESTROL
     Route: 065
  78. NOMEGESTROL [Suspect]
     Active Substance: NOMEGESTROL
     Route: 065
  79. NOMEGESTROL [Suspect]
     Active Substance: NOMEGESTROL
     Route: 065
  80. NOMEGESTROL [Suspect]
     Active Substance: NOMEGESTROL
     Route: 065
  81. NOMEGESTROL [Suspect]
     Active Substance: NOMEGESTROL
     Route: 065
  82. NOMEGESTROL [Suspect]
     Active Substance: NOMEGESTROL
     Route: 065
  83. NOMEGESTROL [Suspect]
     Active Substance: NOMEGESTROL
     Route: 065
  84. NOMEGESTROL [Suspect]
     Active Substance: NOMEGESTROL
     Route: 065
  85. NOMEGESTROL [Suspect]
     Active Substance: NOMEGESTROL
     Route: 065
  86. NOMEGESTROL [Suspect]
     Active Substance: NOMEGESTROL
     Route: 065
  87. NOMEGESTROL [Suspect]
     Active Substance: NOMEGESTROL
     Route: 065
  88. NOMEGESTROL [Suspect]
     Active Substance: NOMEGESTROL
     Route: 065
  89. NOMEGESTROL [Suspect]
     Active Substance: NOMEGESTROL
     Route: 065
  90. NOMEGESTROL [Suspect]
     Active Substance: NOMEGESTROL
     Route: 065
  91. NOMEGESTROL [Suspect]
     Active Substance: NOMEGESTROL
     Route: 065
  92. NOMEGESTROL [Suspect]
     Active Substance: NOMEGESTROL
     Route: 065
  93. NOMEGESTROL [Suspect]
     Active Substance: NOMEGESTROL
     Route: 065
  94. NOMEGESTROL [Suspect]
     Active Substance: NOMEGESTROL
     Route: 065
  95. NOMEGESTROL [Suspect]
     Active Substance: NOMEGESTROL
     Route: 065
  96. NOMEGESTROL [Suspect]
     Active Substance: NOMEGESTROL
     Route: 065
  97. NOMEGESTROL [Suspect]
     Active Substance: NOMEGESTROL
     Route: 065
  98. NOMEGESTROL [Suspect]
     Active Substance: NOMEGESTROL
     Route: 065
  99. NOMEGESTROL [Suspect]
     Active Substance: NOMEGESTROL
     Route: 065
  100. NOMEGESTROL [Suspect]
     Active Substance: NOMEGESTROL
     Route: 065
  101. NOMEGESTROL [Suspect]
     Active Substance: NOMEGESTROL
     Route: 065
  102. NOMEGESTROL [Suspect]
     Active Substance: NOMEGESTROL
     Route: 065
  103. NOMEGESTROL [Suspect]
     Active Substance: NOMEGESTROL
     Route: 065
  104. NOMEGESTROL [Suspect]
     Active Substance: NOMEGESTROL
     Route: 065
  105. NOMEGESTROL [Suspect]
     Active Substance: NOMEGESTROL
     Route: 065
  106. NOMEGESTROL [Suspect]
     Active Substance: NOMEGESTROL
     Route: 065
  107. NOMEGESTROL [Suspect]
     Active Substance: NOMEGESTROL
     Route: 065
  108. NOMEGESTROL [Suspect]
     Active Substance: NOMEGESTROL
     Route: 065
  109. NOMEGESTROL [Suspect]
     Active Substance: NOMEGESTROL
     Route: 065
  110. CHLORMADINONE ACETATE [Suspect]
     Active Substance: CHLORMADINONE ACETATE
     Indication: Menstruation irregular
     Route: 065
     Dates: start: 20191028
  111. BROMAZEPAM [Suspect]
     Active Substance: BROMAZEPAM
     Indication: Product used for unknown indication
     Route: 048
  112. BROMAZEPAM [Suspect]
     Active Substance: BROMAZEPAM
     Route: 048
  113. BROMAZEPAM [Suspect]
     Active Substance: BROMAZEPAM
     Route: 065
  114. GLYCERIN\MINERAL OIL\PETROLATUM [Suspect]
     Active Substance: GLYCERIN\MINERAL OIL\PETROLATUM
     Route: 065
  115. CHLORMADINONE ACETATE [Suspect]
     Active Substance: CHLORMADINONE ACETATE
     Indication: Menstruation irregular
     Route: 065
     Dates: start: 20140505
  116. CHLORMADINONE ACETATE [Suspect]
     Active Substance: CHLORMADINONE ACETATE
     Indication: Ovarian cyst
     Route: 065
     Dates: start: 20190806
  117. CHLORMADINONE ACETATE [Suspect]
     Active Substance: CHLORMADINONE ACETATE
     Indication: Menstruation irregular
     Route: 065
     Dates: start: 20190715
  118. CHLORMADINONE ACETATE [Suspect]
     Active Substance: CHLORMADINONE ACETATE
     Route: 065
     Dates: start: 20190117
  119. CHLORMADINONE ACETATE [Suspect]
     Active Substance: CHLORMADINONE ACETATE
     Route: 065
     Dates: start: 20100317, end: 20100621
  120. PREGABALIN [Suspect]
     Active Substance: PREGABALIN
     Indication: Product used for unknown indication
     Route: 048
  121. PREGABALIN [Suspect]
     Active Substance: PREGABALIN
     Route: 048
  122. PREGABALIN [Suspect]
     Active Substance: PREGABALIN
     Route: 065
  123. PREGABALIN [Suspect]
     Active Substance: PREGABALIN
     Route: 048
  124. PREGABALIN [Suspect]
     Active Substance: PREGABALIN
     Route: 048
  125. PREGABALIN [Suspect]
     Active Substance: PREGABALIN
     Route: 048
  126. PREGABALIN [Suspect]
     Active Substance: PREGABALIN
     Route: 048
  127. PREGABALIN [Suspect]
     Active Substance: PREGABALIN
     Indication: Product used for unknown indication
     Route: 048
  128. TIAPRIDE HYDROCHLORIDE [Suspect]
     Active Substance: TIAPRIDE HYDROCHLORIDE
     Indication: Product used for unknown indication
     Route: 048
  129. NOMEGESTROL ACETATE [Suspect]
     Active Substance: NOMEGESTROL ACETATE
     Indication: Product used for unknown indication
     Route: 065
     Dates: start: 20200621
  130. NOMEGESTROL ACETATE [Suspect]
     Active Substance: NOMEGESTROL ACETATE
     Route: 065
     Dates: start: 20120515
  131. NOMEGESTROL ACETATE [Suspect]
     Active Substance: NOMEGESTROL ACETATE
     Route: 065
     Dates: start: 20140505
  132. NOMEGESTROL ACETATE [Suspect]
     Active Substance: NOMEGESTROL ACETATE
     Route: 065
     Dates: start: 20170307
  133. NOMEGESTROL ACETATE [Suspect]
     Active Substance: NOMEGESTROL ACETATE
     Route: 065
     Dates: start: 20170613
  134. NOMEGESTROL ACETATE [Suspect]
     Active Substance: NOMEGESTROL ACETATE
     Route: 065
     Dates: start: 20170918
  135. NOMEGESTROL ACETATE [Suspect]
     Active Substance: NOMEGESTROL ACETATE
     Route: 065
     Dates: start: 20171211
  136. NOMEGESTROL ACETATE [Suspect]
     Active Substance: NOMEGESTROL ACETATE
     Route: 065
     Dates: start: 20180329
  137. NOMEGESTROL ACETATE [Suspect]
     Active Substance: NOMEGESTROL ACETATE
     Route: 065
  138. NOMEGESTROL ACETATE [Suspect]
     Active Substance: NOMEGESTROL ACETATE
  139. NOMEGESTROL ACETATE [Suspect]
     Active Substance: NOMEGESTROL ACETATE
     Route: 065
  140. NOMEGESTROL ACETATE [Suspect]
     Active Substance: NOMEGESTROL ACETATE
  141. HYDROCORTISONE BUTYRATE [Suspect]
     Active Substance: HYDROCORTISONE BUTYRATE
     Indication: Product used for unknown indication
     Route: 065
  142. TRAMADOL HYDROCHLORIDE [Suspect]
     Active Substance: TRAMADOL HYDROCHLORIDE
     Indication: Product used for unknown indication
     Route: 048
  143. PROGESTERONE [Suspect]
     Active Substance: PROGESTERONE
     Indication: Product used for unknown indication
     Route: 065
  144. CETIRIZINE HYDROCHLORIDE [Suspect]
     Active Substance: CETIRIZINE HYDROCHLORIDE
     Indication: Product used for unknown indication
     Route: 065

REACTIONS (7)
  - Meningioma [Unknown]
  - Pain in extremity [Not Recovered/Not Resolved]
  - Epistaxis [Not Recovered/Not Resolved]
  - Muscular weakness [Not Recovered/Not Resolved]
  - Dizziness [Not Recovered/Not Resolved]
  - Headache [Not Recovered/Not Resolved]
  - Asthenia [Not Recovered/Not Resolved]

NARRATIVE: CASE EVENT DATE: 20211021
